FAERS Safety Report 16612036 (Version 2)
Quarter: 2019Q3

REPORT INFORMATION
  Report Type: Spontaneous
  Country: JP (occurrence: JP)
  Receive Date: 20190722
  Receipt Date: 20190813
  Transmission Date: 20191004
  Serious: Yes (Hospitalization)
  Sender: FDA-Public Use
  Company Number: JP-ELI_LILLY_AND_COMPANY-JP201905012165

PATIENT
  Sex: Male
  Weight: 69 kg

DRUGS (6)
  1. 5 FU [Concomitant]
     Active Substance: FLUOROURACIL
     Dosage: 400 MG/M2
     Route: 040
     Dates: start: 20190415, end: 20190417
  2. IRINOTECAN [Concomitant]
     Active Substance: IRINOTECAN
     Indication: ADENOCARCINOMA OF COLON
     Dosage: 150 MG/M2, OTHER
     Route: 041
     Dates: start: 20190415, end: 20190415
  3. LEVOFOLINATE CALCIUM [Concomitant]
     Active Substance: LEVOLEUCOVORIN CALCIUM
     Indication: ADENOCARCINOMA OF COLON
     Dosage: UNK
     Route: 041
     Dates: start: 20190415, end: 20190415
  4. OLMETEC [Concomitant]
     Active Substance: OLMESARTAN MEDOXOMIL
     Indication: HYPERTENSION
     Dosage: 10 MG, DAILY
     Route: 048
     Dates: start: 20180625, end: 20190506
  5. 5 FU [Concomitant]
     Active Substance: FLUOROURACIL
     Indication: ADENOCARCINOMA OF COLON
     Dosage: 2400 MG/M2, OTHER
     Route: 041
     Dates: start: 20190415, end: 20190415
  6. CYRAMZA [Suspect]
     Active Substance: RAMUCIRUMAB
     Indication: ADENOCARCINOMA OF COLON
     Dosage: 8 MG/KG, OTHER
     Route: 041
     Dates: start: 20190415, end: 20190415

REACTIONS (2)
  - Hypertension [Recovered/Resolved]
  - Nephrotic syndrome [Recovered/Resolved]

NARRATIVE: CASE EVENT DATE: 20190507
